FAERS Safety Report 16286423 (Version 1)
Quarter: 2019Q2

REPORT INFORMATION
  Report Type: Spontaneous
  Country: None (occurrence: FR)
  Receive Date: 20190508
  Receipt Date: 20190508
  Transmission Date: 20190711
  Serious: Yes (Other)
  Sender: FDA-Public Use
  Company Number: FR-PROVELL PHARMACEUTICALS-2066790

PATIENT
  Age: 80 Year
  Sex: Female

DRUGS (3)
  1. EUTHYROX [Suspect]
     Active Substance: LEVOTHYROXINE SODIUM
     Dates: start: 201705, end: 201707
  2. EUTHYROX [Suspect]
     Active Substance: LEVOTHYROXINE SODIUM
     Indication: AUTOIMMUNE THYROIDITIS
     Dates: start: 201704, end: 201705
  3. EUTHYROX [Suspect]
     Active Substance: LEVOTHYROXINE SODIUM
     Dates: start: 201707

REACTIONS (16)
  - Epistaxis [None]
  - Thyroid mass [None]
  - Renal failure [None]
  - Red blood cell sedimentation rate increased [None]
  - Myalgia [None]
  - Muscle spasms [None]
  - Blood thyroid stimulating hormone increased [None]
  - Diarrhoea [None]
  - Vertigo [None]
  - Eye irritation [None]
  - Malaise [None]
  - Abdominal pain upper [None]
  - Alopecia [None]
  - Fatigue [None]
  - Headache [None]
  - Insomnia [None]

NARRATIVE: CASE EVENT DATE: 201705
